FAERS Safety Report 20163661 (Version 2)
Quarter: 2022Q3

REPORT INFORMATION
  Report Type: Spontaneous
  Country: US (occurrence: US)
  Receive Date: 20211209
  Receipt Date: 20220929
  Transmission Date: 20221026
  Serious: Yes (Death, Other)
  Sender: FDA-Public Use
  Company Number: US-Blueprint Medicines Corporation-SP-US-2021-002389

PATIENT
  Age: 10 Year
  Sex: Female

DRUGS (3)
  1. AYVAKIT [Suspect]
     Active Substance: AVAPRITINIB
     Indication: Gastrointestinal stromal tumour
     Route: 048
     Dates: start: 202107, end: 20211115
  2. AYVAKIT [Suspect]
     Active Substance: AVAPRITINIB
     Indication: Product used for unknown indication
     Route: 065
  3. DEXAMETHASONE [Suspect]
     Active Substance: DEXAMETHASONE
     Indication: Inflammation
     Dosage: HUGE DOSES OF ^DEX^
     Route: 065

REACTIONS (9)
  - Death [Fatal]
  - Paralysis [Unknown]
  - Repetitive speech [Unknown]
  - Cognitive disorder [Unknown]
  - Memory impairment [Unknown]
  - Confusional state [Unknown]
  - Off label use [Unknown]
  - Hypoacusis [Recovered/Resolved]
  - Cushingoid [Unknown]

NARRATIVE: CASE EVENT DATE: 20211115
